FAERS Safety Report 7310615-9 (Version None)
Quarter: 2011Q1

REPORT INFORMATION
  Report Type: 
  Country: None (occurrence: None)
  Receive Date: 20110224
  Receipt Date: 20100421
  Transmission Date: 20110831
  Serious: No
  Sender: FDA-Public Use
  Company Number: US-BRISTOL-MYERS SQUIBB COMPANY-15072796

PATIENT
  Sex: Male

DRUGS (2)
  1. METFORMIN HCL [Suspect]
     Indication: DIABETES MELLITUS
     Route: 065
  2. DIABETA [Suspect]
     Indication: DIABETES MELLITUS
     Route: 065

REACTIONS (1)
  - BLOOD GLUCOSE INCREASED [None]
